FAERS Safety Report 9523115 (Version 1)
Quarter: 2013Q3

REPORT INFORMATION
  Report Type: Report from Study
  Country: DE (occurrence: DE)
  Receive Date: 20130913
  Receipt Date: 20130913
  Transmission Date: 20140515
  Serious: Yes (Hospitalization)
  Sender: FDA-Public Use
  Company Number: DE-BRISTOL-MYERS SQUIBB COMPANY-19364256

PATIENT
  Sex: Female

DRUGS (4)
  1. CARBOPLATIN [Suspect]
     Indication: OVARIAN CANCER
     Dosage: 1DF: 5 AUC, RECENT DOSE: 30JUL13
     Route: 042
     Dates: start: 20130618
  2. PACLITAXEL [Suspect]
     Indication: OVARIAN CANCER
     Dosage: RECENT DOSE: 30JUL13
     Route: 042
     Dates: start: 20130618
  3. BEVACIZUMAB [Suspect]
     Indication: OVARIAN CANCER
     Dosage: RECENT DOSE: 30JUL13
     Route: 042
     Dates: start: 20130709
  4. CYMBALTA [Concomitant]
     Indication: NEUROPATHY PERIPHERAL
     Route: 048

REACTIONS (2)
  - General physical health deterioration [Not Recovered/Not Resolved]
  - Hyponatraemia [Not Recovered/Not Resolved]
